FAERS Safety Report 7276264-6 (Version None)
Quarter: 2011Q1

REPORT INFORMATION
  Report Type: 
  Country: None (occurrence: None)
  Receive Date: 20110204
  Receipt Date: 20110201
  Transmission Date: 20110831
  Serious: Yes (Other)
  Sender: FDA-Public Use
  Company Number: IN-ALLERGAN-1101505US

PATIENT
  Age: 56 Year
  Sex: Male

DRUGS (2)
  1. POVIDONE IODINE [Concomitant]
  2. BOTOXA? [Suspect]
     Indication: VITH NERVE PARALYSIS
     Dosage: 2.5 UNITS, SINGLE
     Route: 030

REACTIONS (2)
  - DRUG ADMINISTERED AT INAPPROPRIATE SITE [None]
  - RETINAL TEAR [None]
